FAERS Safety Report 5004009-9 (Version None)
Quarter: 2006Q2

REPORT INFORMATION
  Report Type: 
  Country: None (occurrence: None)
  Receive Date: 20060515
  Receipt Date: 20060515
  Transmission Date: 20061013
  Serious: Yes (Other)
  Sender: FDA-Public Use
  Company Number: None

PATIENT
  Sex: Female
  Weight: 68.0396 kg

DRUGS (2)
  1. ENBREL [Suspect]
     Indication: PSORIASIS
     Dosage: 25MG   WEEKLY   SQ
     Dates: start: 20040929, end: 20060306
  2. ENBREL [Suspect]
     Indication: PSORIATIC ARTHROPATHY
     Dosage: 25MG   WEEKLY   SQ
     Dates: start: 20040929, end: 20060306

REACTIONS (8)
  - CONSTIPATION [None]
  - DEMYELINATION [None]
  - DIZZINESS [None]
  - FEELING ABNORMAL [None]
  - GAIT DISTURBANCE [None]
  - HYPOAESTHESIA [None]
  - NEUROLOGICAL EXAMINATION ABNORMAL [None]
  - SENSORY DISTURBANCE [None]
